FAERS Safety Report 5974151-4 (Version None)
Quarter: 2008Q4

REPORT INFORMATION
  Report Type: 
  Country: None (occurrence: None)
  Receive Date: 20081201
  Receipt Date: 20081127
  Transmission Date: 20090506
  Serious: Yes (Life-Threatening)
  Sender: FDA-Public Use
  Company Number: PL-PFIZER INC-2006022084

PATIENT
  Sex: Female
  Weight: 53 kg

DRUGS (6)
  1. SU-011,248 [Suspect]
     Indication: RENAL CANCER METASTATIC
     Route: 048
     Dates: start: 20050505, end: 20051115
  2. SU-011,248 [Suspect]
     Dates: start: 20051130, end: 20060207
  3. DURAGESIC-100 [Concomitant]
     Route: 062
     Dates: start: 20050222
  4. BENALAPRIL [Concomitant]
     Route: 048
     Dates: start: 20050602
  5. AMLOPIN [Concomitant]
     Route: 048
     Dates: start: 20051201
  6. AREDIA [Concomitant]
     Dates: start: 20060111

REACTIONS (1)
  - TONGUE OEDEMA [None]
